FAERS Safety Report 24221629 (Version 2)
Quarter: 2024Q3

REPORT INFORMATION
  Report Type: Spontaneous
  Country: US (occurrence: US)
  Receive Date: 20240819
  Receipt Date: 20240904
  Transmission Date: 20241017
  Serious: No
  Sender: ROCHE
  Company Number: US-ROCHE-10000058156

PATIENT
  Age: 75 Year
  Sex: Female
  Weight: 63.96 kg

DRUGS (1)
  1. VABYSMO [Suspect]
     Active Substance: FARICIMAB\FARICIMAB-SVOA
     Indication: Diabetic retinal oedema
     Dosage: FREQUENCY DECREASED TO EVERY 9 WEEKS
     Route: 050
     Dates: start: 202308

REACTIONS (8)
  - Pain [Not Recovered/Not Resolved]
  - Lacrimation increased [Not Recovered/Not Resolved]
  - Off label use [Unknown]
  - Illness [Unknown]
  - Asthenia [Unknown]
  - Full blood count abnormal [Unknown]
  - Visual impairment [Not Recovered/Not Resolved]
  - Fatigue [Unknown]

NARRATIVE: CASE EVENT DATE: 20240101
